FAERS Safety Report 5037237-7 (Version None)
Quarter: 2006Q2

REPORT INFORMATION
  Report Type: 
  Country: None (occurrence: None)
  Receive Date: 20060628
  Receipt Date: 20060505
  Transmission Date: 20061013
  Serious: Yes (Disabling)
  Sender: FDA-Public Use
  Company Number: US-MERCK-0605USA01230

PATIENT
  Age: 79 Year
  Sex: Female

DRUGS (3)
  1. SINGULAIR [Suspect]
     Indication: ASTHMA
     Route: 048
     Dates: start: 20060503, end: 20060505
  2. NEURONTIN [Concomitant]
     Route: 065
  3. MIRAPEX [Concomitant]
     Route: 065

REACTIONS (1)
  - RESTLESS LEGS SYNDROME [None]
